FAERS Safety Report 20830572 (Version 4)
Quarter: 2023Q2

REPORT INFORMATION
  Report Type: Spontaneous
  Country: IL (occurrence: IL)
  Receive Date: 20220514
  Receipt Date: 20230414
  Transmission Date: 20230721
  Serious: Yes (Hospitalization)
  Sender: FDA-Public Use
  Company Number: IL-NOVARTISPH-NVSC2022IL110905

PATIENT
  Age: 6 Week
  Sex: Male
  Weight: 3.9 kg

DRUGS (1)
  1. COSENTYX [Suspect]
     Active Substance: SECUKINUMAB
     Indication: Foetal exposure during pregnancy
     Dosage: PATERNAL EXPOSURE DURING PREGNANCY
     Route: 050

REACTIONS (7)
  - Premature baby [Unknown]
  - Urinary tract infection [Recovered/Resolved]
  - Respiratory syncytial virus infection [Recovered/Resolved]
  - Pyrexia [Recovered/Resolved]
  - Inflammation [Recovered/Resolved]
  - Jaundice [Recovered/Resolved]
  - Exposure via father [Unknown]

NARRATIVE: CASE EVENT DATE: 20220328
